FAERS Safety Report 10013038 (Version 2)
Quarter: 2014Q2

REPORT INFORMATION
  Report Type: Spontaneous
  Country: IT (occurrence: IT)
  Receive Date: 20140314
  Receipt Date: 20140425
  Transmission Date: 20141212
  Serious: Yes (Other)
  Sender: FDA-Public Use
  Company Number: IT-BAUSCH-BL-2014-001255

PATIENT
  Age: 65 Year
  Sex: Female

DRUGS (14)
  1. DEXAMETHASONE [Suspect]
     Indication: PLASMA CELL MYELOMA
     Dates: start: 200504, end: 200507
  2. DEXAMETHASONE [Suspect]
     Dates: start: 201010, end: 201104
  3. DEXAMETHASONE [Suspect]
     Route: 048
     Dates: start: 20120301, end: 20120328
  4. DEXAMETHASONE [Suspect]
     Route: 048
     Dates: start: 20120329, end: 20120401
  5. DEXAMETHASONE [Suspect]
     Route: 048
     Dates: start: 20130608, end: 20130620
  6. REVLIMID [Suspect]
     Indication: PLASMA CELL MYELOMA
     Route: 048
     Dates: start: 20120301, end: 20120321
  7. REVLIMID [Suspect]
     Route: 048
     Dates: start: 20130608, end: 20130621
  8. PREDNISONE [Suspect]
     Indication: PLASMA CELL MYELOMA
     Route: 048
     Dates: start: 20121112, end: 20121212
  9. PREDNISONE [Suspect]
     Route: 048
     Dates: start: 20130608, end: 20130620
  10. PREDNISONE [Suspect]
     Route: 048
     Dates: start: 20120301
  11. THALIDOMIDE [Suspect]
     Indication: PLASMA CELL MYELOMA
     Route: 048
     Dates: start: 200504, end: 200507
  12. THALIDOMIDE [Suspect]
     Route: 048
     Dates: start: 201010, end: 201104
  13. ASPIRIN [Concomitant]
     Indication: PROPHYLAXIS
     Route: 048
     Dates: start: 20120229, end: 20130621
  14. ZOLEDRONIC ACID [Concomitant]
     Indication: PROPHYLAXIS
     Dates: start: 20130129, end: 20130530

REACTIONS (1)
  - Superficial spreading melanoma stage unspecified [Recovered/Resolved]
